FAERS Safety Report 13620900 (Version 1)
Quarter: 2017Q2

REPORT INFORMATION
  Report Type: Spontaneous
  Country: US (occurrence: US)
  Receive Date: 20170607
  Receipt Date: 20170607
  Transmission Date: 20170830
  Serious: No
  Sender: FDA-Public Use
  Company Number: US-EISAI MEDICAL RESEARCH-EC-2017-027983

PATIENT
  Age: 6 Year
  Sex: Female
  Weight: 14.5 kg

DRUGS (9)
  1. BANZEL [Suspect]
     Active Substance: RUFINAMIDE
     Dosage: UNKNOWN
     Route: 048
     Dates: end: 20170526
  2. DEPAKOTE [Concomitant]
     Active Substance: DIVALPROEX SODIUM
  3. BANZEL [Suspect]
     Active Substance: RUFINAMIDE
     Dosage: TITRATED DOWN
     Route: 048
     Dates: start: 201510
  4. CALCIUM WITH VITAMIN D [Concomitant]
     Active Substance: CALCIUM\VITAMIN D
  5. POTASSIUM CITRATE. [Concomitant]
     Active Substance: POTASSIUM CITRATE
  6. KEPPRA [Concomitant]
     Active Substance: LEVETIRACETAM
  7. VALPROATE ACID [Concomitant]
  8. BANZEL [Suspect]
     Active Substance: RUFINAMIDE
     Indication: LENNOX-GASTAUT SYNDROME
     Dosage: UNKNOWN
     Route: 048
     Dates: start: 2014, end: 201510
  9. CARNITOR [Concomitant]
     Active Substance: LEVOCARNITINE

REACTIONS (1)
  - Drug withdrawal syndrome [Not Recovered/Not Resolved]

NARRATIVE: CASE EVENT DATE: 201510
